FAERS Safety Report 5231160-0 (Version None)
Quarter: 2007Q1

REPORT INFORMATION
  Report Type: 
  Country: None (occurrence: None)
  Receive Date: 20070205
  Receipt Date: 20070205
  Transmission Date: 20070707
  Serious: No
  Sender: FDA-Public Use
  Company Number: None

PATIENT
  Sex: Female
  Weight: 59.6 kg

DRUGS (2)
  1. RITUXIMAB (MUAB C2B8 ANTI CD20, CHIMERIC)(687451 [Suspect]
     Dosage: 593 MG 375MG/M2 WEEKLY DOSE X 4
  2. GM-CSF (SARGRAMOSTIM, LEUKINE)(613795) [Suspect]
     Dosage: 250 MCG

REACTIONS (5)
  - ASTHENIA [None]
  - DIZZINESS POSTURAL [None]
  - GAIT DISTURBANCE [None]
  - HYPOAESTHESIA [None]
  - NUCLEAR MAGNETIC RESONANCE IMAGING BRAIN ABNORMAL [None]
